FAERS Safety Report 12066993 (Version 1)
Quarter: 2016Q1

REPORT INFORMATION
  Report Type: Spontaneous
  Country: IE (occurrence: IE)
  Receive Date: 20160211
  Receipt Date: 20160211
  Transmission Date: 20160526
  Serious: Yes (Other)
  Sender: FDA-Public Use
  Company Number: IE-AKRON, INC.-1047666

PATIENT
  Age: 4 Year
  Sex: Male

DRUGS (3)
  1. ACYCLOVIR ORAL SUSPENSION, 200 MG/5 ML (ALPHARMA) (ACICLOVIR) [Suspect]
     Active Substance: ACYCLOVIR
     Indication: ECZEMA HERPETICUM
     Route: 048
  2. FLUCOXACILLIN [Concomitant]
  3. CLOBETASONE BUTYRATE [Concomitant]
     Active Substance: CLOBETASONE BUTYRATE

REACTIONS (1)
  - Lichen planus [Recovered/Resolved]
